FAERS Safety Report 9438072 (Version 1)
Quarter: 2013Q3

REPORT INFORMATION
  Report Type: Spontaneous
  Country: US (occurrence: US)
  Receive Date: 20130802
  Receipt Date: 20130802
  Transmission Date: 20140515
  Serious: No
  Sender: FDA-Public Use
  Company Number: US-BRISTOL-MYERS SQUIBB COMPANY-16780355

PATIENT
  Age: 59 Year
  Sex: Male
  Weight: 81.63 kg

DRUGS (2)
  1. WARFARIN SODIUM [Suspect]
     Indication: PULMONARY EMBOLISM
     Dosage: 5MG ON TUESDAY, THURSDAY AND SATURDAY WITH 2.5 MG ON MONDAY, WEDNESDAY, FRIDAY AND SUNDAY
     Route: 048
     Dates: start: 201106
  2. VIAGRA [Concomitant]

REACTIONS (1)
  - International normalised ratio fluctuation [Unknown]
